FAERS Safety Report 7761454-6 (Version None)
Quarter: 2011Q3

REPORT INFORMATION
  Report Type: 
  Country: None (occurrence: None)
  Receive Date: 20110920
  Receipt Date: 20110909
  Transmission Date: 20111222
  Serious: Yes (Other)
  Sender: FDA-Public Use
  Company Number: US-US-EMD SERONO, INC.-7078911

PATIENT
  Sex: Female

DRUGS (3)
  1. GABAPENTIN [Concomitant]
     Indication: PAIN
  2. AMBIEN [Concomitant]
     Indication: SLEEP DISORDER
  3. REBIF [Suspect]
     Indication: MULTIPLE SCLEROSIS
     Route: 058
     Dates: start: 20040101

REACTIONS (2)
  - INJECTION SITE PAIN [None]
  - RHEUMATOID ARTHRITIS [None]
